FAERS Safety Report 25758008 (Version 1)
Quarter: 2025Q3

REPORT INFORMATION
  Report Type: Spontaneous
  Country: GB (occurrence: GB)
  Receive Date: 20250903
  Receipt Date: 20250903
  Transmission Date: 20251020
  Serious: Yes (Death, Other)
  Sender: TEVA
  Company Number: None

PATIENT
  Age: 82 Year
  Sex: Female

DRUGS (2)
  1. ALENDRONIC ACID [Suspect]
     Active Substance: ALENDRONIC ACID
     Indication: Osteoarthritis
     Route: 065
     Dates: start: 20200201, end: 20250828
  2. HYDROCORTISONE [Concomitant]
     Active Substance: HYDROCORTISONE
     Indication: Addison^s disease

REACTIONS (6)
  - Internal haemorrhage [Fatal]
  - Drug monitoring procedure not performed [Unknown]
  - Atypical femur fracture [Not Recovered/Not Resolved]
  - Arthralgia [Unknown]
  - Groin pain [Unknown]
  - Gastric ulcer [Unknown]

NARRATIVE: CASE EVENT DATE: 20230828
